FAERS Safety Report 12487219 (Version 1)
Quarter: 2016Q2

REPORT INFORMATION
  Report Type: Report from Study
  Country: US (occurrence: US)
  Receive Date: 20160622
  Receipt Date: 20160622
  Transmission Date: 20160815
  Serious: No
  Sender: FDA-Public Use
  Company Number: US-AMGEN-USASL2016075956

PATIENT
  Age: 71 Year
  Sex: Female

DRUGS (1)
  1. ENBREL [Suspect]
     Active Substance: ETANERCEPT
     Indication: RHEUMATOID ARTHRITIS
     Dosage: UNK, QWK
     Route: 065
     Dates: start: 2016

REACTIONS (4)
  - Sunburn [Recovering/Resolving]
  - Pruritus [Not Recovered/Not Resolved]
  - Discomfort [Unknown]
  - No therapeutic response [Unknown]

NARRATIVE: CASE EVENT DATE: 2016
